FAERS Safety Report 7821917-1 (Version None)
Quarter: 2011Q4

REPORT INFORMATION
  Report Type: 
  Country: None (occurrence: None)
  Receive Date: 20111018
  Receipt Date: 20110331
  Transmission Date: 20120403
  Serious: No
  Sender: FDA-Public Use
  Company Number: US-ASTRAZENECA-2011SE12004

PATIENT
  Sex: Female

DRUGS (7)
  1. SYMBICORT [Suspect]
     Indication: CHRONIC OBSTRUCTIVE PULMONARY DISEASE
     Dosage: 160/4.5 MCG, TWO PUFFS TWICE A DAY
     Route: 055
     Dates: start: 20101201
  2. BLOOD PRESSURE MEDICATION [Concomitant]
  3. DIOVAN [Concomitant]
  4. LASIX [Concomitant]
  5. SYMBICORT [Suspect]
     Dosage: 160/4.5 MCG, 1 PUFF TWICE A DAY
     Route: 055
  6. SYMBICORT [Suspect]
     Route: 055
     Dates: start: 20110101
  7. LISINOPRIL [Concomitant]

REACTIONS (11)
  - PAIN [None]
  - FLUID OVERLOAD [None]
  - INCORRECT DOSE ADMINISTERED [None]
  - EYE HAEMORRHAGE [None]
  - PAIN IN EXTREMITY [None]
  - HEART RATE INCREASED [None]
  - GENERAL PHYSICAL CONDITION ABNORMAL [None]
  - DYSPEPSIA [None]
  - OEDEMA PERIPHERAL [None]
  - BLOOD GLUCOSE INCREASED [None]
  - OROPHARYNGEAL PAIN [None]
